FAERS Safety Report 7147962-X (Version None)
Quarter: 2010Q4

REPORT INFORMATION
  Report Type: 
  Country: None (occurrence: None)
  Receive Date: 20101209
  Receipt Date: 20101129
  Transmission Date: 20110411
  Serious: Yes (Other)
  Sender: FDA-Public Use
  Company Number: BR-JNJFOC-20101200836

PATIENT
  Age: 43 Year
  Sex: Male

DRUGS (5)
  1. REMICADE [Suspect]
     Indication: ANKYLOSING SPONDYLITIS
     Route: 042
  2. REMICADE [Suspect]
     Route: 042
  3. OXCARBAZEPINE [Concomitant]
  4. OMEPRAZOLE [Concomitant]
     Indication: GASTRIC DISORDER
  5. TRAMADOL [Concomitant]

REACTIONS (4)
  - CHEST PAIN [None]
  - HEADACHE [None]
  - PYREXIA [None]
  - SUBCUTANEOUS ABSCESS [None]
